FAERS Safety Report 18519735 (Version 1)
Quarter: 2020Q4

REPORT INFORMATION
  Report Type: Spontaneous
  Country: JP (occurrence: JP)
  Receive Date: 20201118
  Receipt Date: 20201118
  Transmission Date: 20210114
  Serious: Yes (Death, Hospitalization, Other)
  Sender: FDA-Public Use
  Company Number: JP-009507513-2009JPN002535J

PATIENT
  Age: 70 Year
  Sex: Male

DRUGS (6)
  1. PACLITAXEL ALBUMIN [Suspect]
     Active Substance: PACLITAXEL
     Dosage: UNK
     Route: 041
     Dates: end: 20200212
  2. KEYTRUDA [Suspect]
     Active Substance: PEMBROLIZUMAB
     Indication: LUNG ADENOCARCINOMA STAGE IV
     Dosage: 200 MILLIGRAM, Q3W
     Route: 041
     Dates: start: 201908, end: 201909
  3. KEYTRUDA [Suspect]
     Active Substance: PEMBROLIZUMAB
     Dosage: 200 MILLIGRAM, Q3W
     Route: 041
     Dates: start: 201912, end: 20200212
  4. CARBOPLATIN. [Suspect]
     Active Substance: CARBOPLATIN
     Indication: LUNG ADENOCARCINOMA STAGE IV
     Dosage: UNK
     Route: 041
     Dates: start: 20190618
  5. CARBOPLATIN. [Suspect]
     Active Substance: CARBOPLATIN
     Dosage: UNK
     Route: 041
     Dates: end: 20200212
  6. PACLITAXEL ALBUMIN [Suspect]
     Active Substance: PACLITAXEL
     Indication: LUNG ADENOCARCINOMA STAGE IV
     Dosage: UNK
     Route: 041
     Dates: start: 20190618

REACTIONS (5)
  - Immune-mediated hepatic disorder [Recovered/Resolved]
  - Lymphangiosis carcinomatosa [Fatal]
  - Immune-mediated enterocolitis [Recovered/Resolved]
  - Off label use [Unknown]
  - Gastrointestinal oedema [Unknown]

NARRATIVE: CASE EVENT DATE: 2020
